FAERS Safety Report 8223707-7 (Version None)
Quarter: 2012Q1

REPORT INFORMATION
  Report Type: 
  Country: None (occurrence: None)
  Receive Date: 20120321
  Receipt Date: 20120301
  Transmission Date: 20120608
  Serious: Yes (Other)
  Sender: FDA-Public Use
  Company Number: JP-JNJFOC-20120205829

PATIENT
  Age: 75 Year
  Sex: Female

DRUGS (2)
  1. TRAMADOL HYDROCHLORIDE AND ACETAMINOPHEN [Suspect]
     Indication: PAIN
     Dosage: ONCE A DAY
     Route: 048
     Dates: start: 20111105
  2. PRIMPERAN TAB [Concomitant]
     Indication: GASTRITIS
     Route: 048
     Dates: start: 20111105, end: 20111112

REACTIONS (1)
  - GASTRIC ULCER [None]
